FAERS Safety Report 7732743-6 (Version None)
Quarter: 2011Q3

REPORT INFORMATION
  Report Type: 
  Country: None (occurrence: None)
  Receive Date: 20110907
  Receipt Date: 20110902
  Transmission Date: 20111222
  Serious: Yes (Other)
  Sender: FDA-Public Use
  Company Number: US-SHIRE-ALL1-2011-02122

PATIENT
  Sex: Female

DRUGS (2)
  1. ALLEGRA [Concomitant]
     Indication: PRODUCT USED FOR UNKNOWN INDICATION
     Dosage: UNK, UNKNOWN
     Route: 065
  2. LIALDA [Suspect]
     Indication: PRODUCT USED FOR UNKNOWN INDICATION
     Dosage: 3.6 G, 1X/DAY:QD (3 PILLS)
     Route: 048
     Dates: end: 20110624

REACTIONS (1)
  - AUTOIMMUNE HEPATITIS [None]
